FAERS Safety Report 7315875-6 (Version None)
Quarter: 2011Q1

REPORT INFORMATION
  Report Type: 
  Country: None (occurrence: None)
  Receive Date: 20110225
  Receipt Date: 20110214
  Transmission Date: 20110831
  Serious: Yes (Other)
  Sender: FDA-Public Use
  Company Number: US-ROCHE-734135

PATIENT
  Sex: Male
  Weight: 86.2 kg

DRUGS (4)
  1. ACCUTANE [Suspect]
     Indication: ACNE
     Route: 065
     Dates: start: 19930101, end: 19940101
  2. ACCUTANE [Suspect]
     Route: 065
     Dates: start: 20090101, end: 20100101
  3. AMNESTEEM [Suspect]
     Indication: ACNE
     Route: 048
     Dates: start: 20091031, end: 20100501
  4. CLARAVIS [Suspect]
     Indication: ACNE
     Route: 048
     Dates: start: 20091201

REACTIONS (13)
  - BLOOD CHOLESTEROL INCREASED [None]
  - FRACTURE [None]
  - CROHN'S DISEASE [None]
  - DEPRESSION [None]
  - HERNIA [None]
  - POUCHITIS [None]
  - GASTROINTESTINAL INJURY [None]
  - ANAL FISTULA [None]
  - ORAL HERPES [None]
  - COLITIS ULCERATIVE [None]
  - INTESTINAL OBSTRUCTION [None]
  - TENDONITIS [None]
  - IRRITABLE BOWEL SYNDROME [None]
